FAERS Safety Report 15434662 (Version 19)
Quarter: 2022Q3

REPORT INFORMATION
  Report Type: Spontaneous
  Country: JP (occurrence: JP)
  Receive Date: 20180927
  Receipt Date: 20220915
  Transmission Date: 20221027
  Serious: Yes (Other)
  Sender: FDA-Public Use
  Company Number: JP-JNJFOC-20170714850

PATIENT
  Age: 63 Year
  Sex: Male

DRUGS (37)
  1. TRAMCET [Suspect]
     Active Substance: ACETAMINOPHEN\TRAMADOL
     Indication: Pain
     Route: 048
     Dates: start: 2016
  2. RISPERDAL [Suspect]
     Active Substance: RISPERIDONE
     Indication: Depression
     Dosage: DOSE UNKNOWN
     Route: 048
     Dates: start: 2008
  3. RISPERDAL [Suspect]
     Active Substance: RISPERIDONE
     Route: 048
  4. RISPERDAL [Suspect]
     Active Substance: RISPERIDONE
     Dosage: AFTER MEALS
     Route: 048
  5. RISPERDAL [Suspect]
     Active Substance: RISPERIDONE
     Dosage: P.R.N
     Route: 048
  6. RISPERDAL [Suspect]
     Active Substance: RISPERIDONE
     Route: 048
     Dates: start: 201808
  7. RISPERDAL [Suspect]
     Active Substance: RISPERIDONE
     Dosage: AFTER EACH MEAL
     Route: 048
     Dates: start: 2018
  8. RISPERDAL [Suspect]
     Active Substance: RISPERIDONE
     Dosage: IN THE MORNINGIN THE AFTERNOONIN THE EVENINGAFTER EACH MEAL
     Route: 048
  9. RISPERDAL [Suspect]
     Active Substance: RISPERIDONE
     Dosage: P.R.N
     Route: 048
  10. RISPERDAL [Suspect]
     Active Substance: RISPERIDONE
     Dosage: IN THE MORNING,IN THE AFTERNOON,IN THE EVENING
     Route: 048
     Dates: end: 2020
  11. RISPERDAL [Suspect]
     Active Substance: RISPERIDONE
     Dosage: IN THE MORNING,IN THE AFTERNOON,IN THE EVENING
     Route: 048
     Dates: start: 2020, end: 202009
  12. RISPERDAL [Suspect]
     Active Substance: RISPERIDONE
     Dosage: IN THE MORNING,IN THE AFTERNOON,IN THE EVENING
     Route: 048
     Dates: start: 2020
  13. RISPERDAL [Suspect]
     Active Substance: RISPERIDONE
     Dosage: AFTER EACH MEAL
     Route: 048
     Dates: end: 202009
  14. RISPERDAL [Suspect]
     Active Substance: RISPERIDONE
     Dosage: P.R.N
     Route: 048
  15. RISPERDAL [Suspect]
     Active Substance: RISPERIDONE
     Indication: Depression
     Dosage: RISPERIDONE:1MG/ML
     Route: 048
  16. CHLORPROMAZINE HYDROCHLORIDE [Suspect]
     Active Substance: CHLORPROMAZINE HYDROCHLORIDE
     Indication: Product used for unknown indication
     Dosage: AT BED TIME
     Route: 048
  17. DOMPERIDONE [Concomitant]
     Active Substance: DOMPERIDONE
     Route: 065
     Dates: start: 2016
  18. CHLORPROMAZINE [Concomitant]
     Active Substance: CHLORPROMAZINE
     Route: 048
  19. CHLORPROMAZINE [Concomitant]
     Active Substance: CHLORPROMAZINE
     Dosage: AT BEDTIME
     Route: 048
  20. CHLORPROMAZINE [Concomitant]
     Active Substance: CHLORPROMAZINE
     Dosage: AT BEDTIME
     Route: 048
  21. UNSPECIFIED INGREDIENT [Concomitant]
     Active Substance: UNSPECIFIED INGREDIENT
     Route: 048
  22. REBAMIPIDE [Concomitant]
     Active Substance: REBAMIPIDE
     Route: 065
  23. ATARAX [Concomitant]
     Active Substance: HYDROXYZINE HYDROCHLORIDE
     Indication: Pain
     Route: 065
  24. VOLTAREN [Concomitant]
     Active Substance: DICLOFENAC SODIUM
     Indication: Pain
     Route: 065
  25. PENTAZOCINE [Concomitant]
     Active Substance: PENTAZOCINE
     Indication: Pain
     Route: 065
  26. HYDROXYZINE HYDROCHLORIDE [Concomitant]
     Active Substance: HYDROXYZINE HYDROCHLORIDE
     Indication: Pain
     Route: 065
  27. AKINETON [Concomitant]
     Active Substance: BIPERIDEN HYDROCHLORIDE
     Indication: Extrapyramidal disorder
     Route: 030
  28. AKINETON [Concomitant]
     Active Substance: BIPERIDEN HYDROCHLORIDE
     Route: 048
  29. AKINETON [Concomitant]
     Active Substance: BIPERIDEN HYDROCHLORIDE
     Route: 048
  30. AKINETON [Concomitant]
     Active Substance: BIPERIDEN HYDROCHLORIDE
     Indication: Extrapyramidal disorder
     Route: 048
  31. AKINETON [Concomitant]
     Active Substance: BIPERIDEN HYDROCHLORIDE
     Route: 048
  32. CERCINE [Concomitant]
     Active Substance: DIAZEPAM
     Route: 048
  33. /00011902/ [Concomitant]
     Route: 048
  34. NAUZELIN [Concomitant]
     Active Substance: DOMPERIDONE
     Route: 065
     Dates: start: 2016
  35. REBAMIPIDE [Concomitant]
     Active Substance: REBAMIPIDE
     Route: 065
  36. JANUVIA [Concomitant]
     Active Substance: SITAGLIPTIN PHOSPHATE
     Dosage: IN THE MORNING
     Route: 048
  37. PYRETHIA [Concomitant]
     Active Substance: PROMETHAZINE HYDROCHLORIDE
     Dosage: AT BEDTIME
     Route: 048

REACTIONS (23)
  - Normal tension glaucoma [Unknown]
  - Priapism [Not Recovered/Not Resolved]
  - Hallucination, auditory [Recovered/Resolved]
  - Erectile dysfunction [Unknown]
  - Cataract [Not Recovered/Not Resolved]
  - Gastrooesophageal reflux disease [Unknown]
  - Insomnia [Unknown]
  - Nausea [Unknown]
  - Thirst [Unknown]
  - Dysarthria [Unknown]
  - Constipation [Unknown]
  - Inappropriate schedule of product administration [Unknown]
  - Off label use [Unknown]
  - Orthostatic hypotension [Not Recovered/Not Resolved]
  - Blood cholesterol increased [Unknown]
  - Malaise [Unknown]
  - Pain [Unknown]
  - Inappropriate schedule of product administration [Unknown]
  - Eczema [Unknown]
  - Eosinophil count increased [Unknown]
  - Therapeutic product effect incomplete [Unknown]
  - Ejaculation disorder [Unknown]
  - Libido decreased [Unknown]

NARRATIVE: CASE EVENT DATE: 20180801
